FAERS Safety Report 6146833-5 (Version None)
Quarter: 2009Q2

REPORT INFORMATION
  Report Type: 
  Country: None (occurrence: None)
  Receive Date: 20090406
  Receipt Date: 20090406
  Transmission Date: 20091009
  Serious: Yes (Death)
  Sender: FDA-Public Use
  Company Number: None

PATIENT
  Age: 82 Year
  Sex: Female
  Weight: 63.5036 kg

DRUGS (1)
  1. DIGOXIN [Suspect]
     Indication: ARRHYTHMIA
     Dosage: 0.125 MG 1X DAY PO
     Route: 048
     Dates: start: 20080531, end: 20080831

REACTIONS (4)
  - ARRHYTHMIA [None]
  - DIZZINESS [None]
  - FATIGUE [None]
  - NAUSEA [None]
